FAERS Safety Report 8610556-0 (Version None)
Quarter: 2012Q3

REPORT INFORMATION
  Report Type: 
  Country: None (occurrence: None)
  Receive Date: 20120808
  Receipt Date: 20120727
  Transmission Date: 20120928
  Serious: Yes (Hospitalization, Other)
  Sender: FDA-Public Use
  Company Number: JPI-P-023336

PATIENT
  Age: 46 Year
  Sex: Male
  Weight: 149.687 kg

DRUGS (5)
  1. XYREM [Suspect]
     Indication: SOMNOLENCE
     Dosage: 9 GM (4.5 GM, 2 IN 1 D), ORAL; (4 GM 1ST DOSE / 2.5 GM 2ND DOSE, ORAL
     Route: 048
     Dates: start: 20111024
  2. XYREM [Suspect]
     Indication: NARCOLEPSY
     Dosage: 9 GM (4.5 GM, 2 IN 1 D), ORAL; (4 GM 1ST DOSE / 2.5 GM 2ND DOSE, ORAL
     Route: 048
     Dates: start: 20111024
  3. XYREM [Suspect]
     Indication: SOMNOLENCE
     Dosage: 9 GM (4.5 GM, 2 IN 1 D), ORAL; (4 GM 1ST DOSE / 2.5 GM 2ND DOSE, ORAL
     Route: 048
     Dates: start: 20110516, end: 20110101
  4. XYREM [Suspect]
     Indication: NARCOLEPSY
     Dosage: 9 GM (4.5 GM, 2 IN 1 D), ORAL; (4 GM 1ST DOSE / 2.5 GM 2ND DOSE, ORAL
     Route: 048
     Dates: start: 20110516, end: 20110101
  5. MULTIPLE UNSPECIFIED MEDICATIONS [Concomitant]

REACTIONS (2)
  - FOREARM FRACTURE [None]
  - FALL [None]
